FAERS Safety Report 10565470 (Version 16)
Quarter: 2018Q1

REPORT INFORMATION
  Report Type: Spontaneous
  Country: US (occurrence: US)
  Receive Date: 20141105
  Receipt Date: 20180130
  Transmission Date: 20180508
  Serious: No
  Sender: FDA-Public Use
  Company Number: US-PFIZER INC-2014302107

PATIENT
  Age: 76 Year
  Sex: Female
  Weight: 69 kg

DRUGS (25)
  1. CYANOCOBALAMIN. [Concomitant]
     Active Substance: CYANOCOBALAMIN
     Dosage: 1000 UG, UNK
  2. ZOMETA [Concomitant]
     Active Substance: ZOLEDRONIC ACID
     Dosage: UNK
  3. SUTENT [Suspect]
     Active Substance: SUNITINIB MALATE
     Dosage: 25 MG, CYCLIC (TAKE 1 CAPSULE BY MOUTH EVERY DAY FOR 28 DAYS ON THEN 14 DAYS OFF)
     Route: 048
     Dates: start: 20140731
  4. NYQUIL COLD AND FLU [Concomitant]
     Active Substance: ACETAMINOPHEN\DEXTROMETHORPHAN HYDROBROMIDE\DOXYLAMINE SUCCINATE
     Dosage: UNK
  5. SUTENT [Suspect]
     Active Substance: SUNITINIB MALATE
     Indication: RENAL CELL CARCINOMA STAGE IV
     Dosage: 50 MG, CYCLIC (28 DAYS ON AND 14 DAYS OFF) FOR 2 CYCLES
     Dates: start: 20140802
  6. SUTENT [Suspect]
     Active Substance: SUNITINIB MALATE
     Dosage: 37.5 MG, CYCLIC (28 DAYS ON/14 DAYS OFF)
     Route: 048
     Dates: start: 20141025
  7. SUTENT [Suspect]
     Active Substance: SUNITINIB MALATE
     Dosage: 25 MG, CYCLIC (28 DAYS ON/14 DAYS OFF)
     Route: 048
  8. SUTENT [Suspect]
     Active Substance: SUNITINIB MALATE
     Dosage: 25 MG, CYCLIC (EVERY DAY FOR 28 DAYS ON THEN 14 DAYS OFF)
     Route: 048
     Dates: start: 20160814, end: 201705
  9. TRIBENZOR [Concomitant]
     Active Substance: AMLODIPINE BESYLATE\HYDROCHLOROTHIAZIDE\OLMESARTAN MEDOXOMIL
     Dosage: UNK
  10. VIACTIV CHE [Concomitant]
     Dosage: UNK (500-500-MG-UN)
  11. OMEPRAZOLE. [Concomitant]
     Active Substance: OMEPRAZOLE
     Dosage: UNK
  12. AZITHROMYCIN ANHYDROUS. [Concomitant]
     Active Substance: AZITHROMYCIN ANHYDROUS
     Dosage: 250 MG, UNK
  13. VITAMIN C [Concomitant]
     Active Substance: ASCORBIC ACID
     Dosage: 500 MG, UNK
  14. VITAMIN E [Concomitant]
     Active Substance: .ALPHA.-TOCOPHEROL
     Dosage: 1000 IU, UNK
  15. SUTENT [Suspect]
     Active Substance: SUNITINIB MALATE
     Dosage: 25 MG, CYCLIC (1 CAPSULE BY MOUTH EVERY DAY FOR 28 DAYS ON THEN 14 DAYS OFF)
     Dates: start: 201408
  16. TYLENOL ARTHRITIS PAIN [Concomitant]
     Active Substance: ACETAMINOPHEN
     Dosage: 650 MG, UNK
  17. AMBIEN [Concomitant]
     Active Substance: ZOLPIDEM TARTRATE
     Dosage: UNK, AS NEEDED
  18. AMLODIPINE [Concomitant]
     Active Substance: AMLODIPINE BESYLATE
     Dosage: 10 MG, UNK
  19. ZINC CHLORIDE [Concomitant]
     Active Substance: ZINC CHLORIDE
     Dosage: 50 MG, UNK
  20. L-LYSINE [Concomitant]
     Active Substance: LYSINE
     Dosage: 500 MG, UNK
  21. SUTENT [Suspect]
     Active Substance: SUNITINIB MALATE
     Indication: HYPERTHYROIDISM
     Dosage: 37.5 MG, CYCLIC (DAILY, 28 DAYS ON AND 14 DAYS OFF)
     Dates: start: 2014
  22. SUTENT [Suspect]
     Active Substance: SUNITINIB MALATE
     Dosage: 37.5 MG, CYCLIC (28 DAYS ON/14 DAYS OFF)
     Route: 048
     Dates: start: 20140830
  23. SUTENT [Suspect]
     Active Substance: SUNITINIB MALATE
     Dosage: 25 MG, CYCLIC (TAKE 1 CAPSULE BY MOUTH EVERY DAY FOR 28 DAYS ON THEN 14 DAYS OFF)
     Route: 048
     Dates: start: 20140908
  24. MUCINEX [Concomitant]
     Active Substance: GUAIFENESIN
     Dosage: UNK DAY/NIGHT
  25. LEVOTHYROXIN [Concomitant]
     Active Substance: LEVOTHYROXINE
     Dosage: 100 UG, UNK

REACTIONS (34)
  - Blood pressure increased [Not Recovered/Not Resolved]
  - Mouth ulceration [Recovered/Resolved]
  - Weight decreased [Unknown]
  - Onychoclasis [Unknown]
  - Pain in extremity [Unknown]
  - Arthritis [Unknown]
  - Madarosis [Not Recovered/Not Resolved]
  - Hyperkeratosis [Recovering/Resolving]
  - Asthenia [Unknown]
  - Oropharyngeal pain [Unknown]
  - Thyroid disorder [Unknown]
  - Joint swelling [Unknown]
  - Increased tendency to bruise [Not Recovered/Not Resolved]
  - Dysgeusia [Not Recovered/Not Resolved]
  - Decreased appetite [Not Recovered/Not Resolved]
  - Fatigue [Not Recovered/Not Resolved]
  - Alopecia [Not Recovered/Not Resolved]
  - Hair texture abnormal [Unknown]
  - Glossodynia [Unknown]
  - Dysphonia [Unknown]
  - Cough [Not Recovered/Not Resolved]
  - Eyelash discolouration [Not Recovered/Not Resolved]
  - Palmar-plantar erythrodysaesthesia syndrome [Not Recovered/Not Resolved]
  - Blister [Not Recovered/Not Resolved]
  - Mobility decreased [Unknown]
  - Neoplasm progression [Not Recovered/Not Resolved]
  - Tongue ulceration [Not Recovered/Not Resolved]
  - Eyelid oedema [Not Recovered/Not Resolved]
  - Temperature intolerance [Not Recovered/Not Resolved]
  - Hypotension [Not Recovered/Not Resolved]
  - Hair colour changes [Unknown]
  - Ligament sprain [Not Recovered/Not Resolved]
  - Laceration [Unknown]
  - Malaise [Not Recovered/Not Resolved]

NARRATIVE: CASE EVENT DATE: 201408
